FAERS Safety Report 25181069 (Version 1)
Quarter: 2025Q2

REPORT INFORMATION
  Report Type: Spontaneous
  Country: US (occurrence: US)
  Receive Date: 20250410
  Receipt Date: 20250410
  Transmission Date: 20250716
  Serious: No
  Sender: AMGEN
  Company Number: US-AMGEN-USASP2025066563

PATIENT
  Sex: Female

DRUGS (1)
  1. REPATHA [Suspect]
     Active Substance: EVOLOCUMAB
     Indication: Hypercholesterolaemia
     Route: 058
     Dates: end: 202503

REACTIONS (5)
  - Myalgia [Unknown]
  - Pruritus [Unknown]
  - Swelling face [Unknown]
  - Pain [Unknown]
  - Swollen tongue [Unknown]
